FAERS Safety Report 13544782 (Version 1)
Quarter: 2017Q2

REPORT INFORMATION
  Report Type: Spontaneous
  Country: US (occurrence: US)
  Receive Date: 20170515
  Receipt Date: 20170515
  Transmission Date: 20170830
  Serious: No
  Sender: FDA-Public Use
  Company Number: US-GLAXOSMITHKLINE-US2017GSK069779

PATIENT
  Sex: Male

DRUGS (1)
  1. LOVAZA [Suspect]
     Active Substance: OMEGA-3-ACID ETHYL ESTERS

REACTIONS (1)
  - Drug dose omission [Unknown]
